FAERS Safety Report 8848935 (Version 1)
Quarter: 2012Q4

REPORT INFORMATION
  Report Type: 
  Country: US (occurrence: US)
  Receive Date: 20121018
  Receipt Date: 20121018
  Transmission Date: 20130627
  Serious: Yes (Other)
  Sender: FDA-Public Use
  Company Number: US-NOVOPROD-362007

PATIENT
  Age: 12 Year
  Sex: Male
  Weight: 54.88 kg

DRUGS (2)
  1. NORDITROPIN FLEXPRO 6.7 MG/ML [Suspect]
     Indication: GROWTH HORMONE DEFICIENCY
     Dosage: 2.1 mg qd, nightly
     Route: 058
     Dates: start: 201204
  2. MULTIVITAMIN                       /00097801/ [Concomitant]
     Indication: VITAMIN SUPPLEMENTATION
     Route: 048

REACTIONS (1)
  - Loss of consciousness [Recovered/Resolved]
